FAERS Safety Report 10351523 (Version 1)
Quarter: 2014Q3

REPORT INFORMATION
  Report Type: Spontaneous
  Country: DE (occurrence: DE)
  Receive Date: 20140730
  Receipt Date: 20140730
  Transmission Date: 20150326
  Serious: Yes (Hospitalization, Other)
  Sender: FDA-Public Use
  Company Number: PHHY2014DE092589

PATIENT
  Age: 74 Year
  Sex: Male

DRUGS (3)
  1. DEXAMETHASONE. [Suspect]
     Active Substance: DEXAMETHASONE
     Indication: HYPOPHYSITIS
     Dosage: 12 MG, PER DAY
     Route: 048
  2. THYROXINE [Concomitant]
     Active Substance: LEVOTHYROXINE
  3. DEXAMETHASONE. [Suspect]
     Active Substance: DEXAMETHASONE
     Dosage: 2 MG, PER DAY
     Route: 048

REACTIONS (3)
  - Adrenocortical insufficiency acute [Unknown]
  - Hypopituitarism [Unknown]
  - Blood gonadotrophin decreased [Unknown]
